FAERS Safety Report 10332551 (Version 2)
Quarter: 2014Q3

REPORT INFORMATION
  Report Type: Spontaneous
  Country: US (occurrence: US)
  Receive Date: 20140722
  Receipt Date: 20140826
  Transmission Date: 20150326
  Serious: Yes (Other)
  Sender: FDA-Public Use
  Company Number: US-GLAXOSMITHKLINE-A1081593A

PATIENT
  Age: 58 Year
  Sex: Male

DRUGS (5)
  1. BLOOD PRESSURE MEDICATION [Suspect]
     Active Substance: UNSPECIFIED INGREDIENT
     Indication: BLOOD PRESSURE ABNORMAL
  2. VENTOLIN [Suspect]
     Active Substance: ALBUTEROL SULFATE
     Indication: ASTHMA
     Dosage: 1PUFF AS REQUIRED
     Dates: start: 2011
  3. ADVAIR HFA [Suspect]
     Active Substance: FLUTICASONE PROPIONATE\SALMETEROL XINAFOATE
     Indication: ASTHMA
     Dosage: 1PUFF PER DAY
     Route: 065
     Dates: start: 201306
  4. FOLIC ACID. [Concomitant]
     Active Substance: FOLIC ACID
  5. METFORMIN [Concomitant]
     Active Substance: METFORMIN HYDROCHLORIDE

REACTIONS (5)
  - Blood pressure increased [Recovered/Resolved]
  - Nasopharyngitis [Recovered/Resolved]
  - Dyspnoea [Unknown]
  - Rhinorrhoea [Recovered/Resolved]
  - Lower respiratory tract infection [Recovered/Resolved]

NARRATIVE: CASE EVENT DATE: 201407
